FAERS Safety Report 20621875 (Version 2)
Quarter: 2022Q2

REPORT INFORMATION
  Report Type: Report from Study
  Country: US (occurrence: US)
  Receive Date: 20220322
  Receipt Date: 20220401
  Transmission Date: 20220721
  Serious: Yes (Life-Threatening, Hospitalization)
  Sender: FDA-Public Use
  Company Number: US-NOVARTISPH-NVSC2022US064251

PATIENT
  Age: 58 Year
  Sex: Female
  Weight: 102.4 kg

DRUGS (2)
  1. TASIGNA [Suspect]
     Active Substance: NILOTINIB
     Indication: Chronic myeloid leukaemia
     Dosage: 150 MG, QD
     Route: 048
     Dates: start: 202008
  2. TASIGNA [Suspect]
     Active Substance: NILOTINIB
     Dosage: 150 MG, QD
     Route: 048
     Dates: start: 202008

REACTIONS (10)
  - Hypertension [Recovering/Resolving]
  - Quality of life decreased [Unknown]
  - Insomnia [Unknown]
  - Product use issue [Unknown]
  - Neuralgia [Unknown]
  - Myalgia [Unknown]
  - Visual impairment [Unknown]
  - Abdominal pain [Unknown]
  - Fatigue [Unknown]
  - Dizziness [Unknown]

NARRATIVE: CASE EVENT DATE: 20200801
